FAERS Safety Report 9416334 (Version 2)
Quarter: 2013Q4

REPORT INFORMATION
  Report Type: Spontaneous
  Country: US (occurrence: US)
  Receive Date: 20130718
  Receipt Date: 20131120
  Transmission Date: 20140711
  Serious: Yes (Hospitalization, Other)
  Sender: FDA-Public Use
  Company Number: JPI-P-033572

PATIENT
  Age: 31 Year
  Sex: Female
  Weight: 59.9 kg

DRUGS (3)
  1. XYREM (500 MG/ML SOLUTION)(SODIUM OXYBATE) [Suspect]
     Indication: NARCOLEPSY
     Dosage: TWO DOSES OF3 GM TAKEN NIGHTLY/AT BEDTIME.
     Route: 048
     Dates: start: 20120904, end: 2012
  2. ELAVIL [Concomitant]
  3. EFFEXOR [Concomitant]

REACTIONS (3)
  - Pancreatitis [None]
  - Cholecystectomy [None]
  - Cholelithiasis [None]
